FAERS Safety Report 7668241-8 (Version None)
Quarter: 2011Q3

REPORT INFORMATION
  Report Type: 
  Country: None (occurrence: None)
  Receive Date: 20110808
  Receipt Date: 20110725
  Transmission Date: 20111222
  Serious: Yes (Other)
  Sender: FDA-Public Use
  Company Number: FR-UCBSA-037679

PATIENT
  Sex: Female

DRUGS (3)
  1. LAMICTAL [Suspect]
     Indication: EPILEPSY
     Dosage: 200MG DAILY
     Route: 048
  2. LAMICTAL [Suspect]
     Dosage: PROGRESSIVELY WEANED
     Route: 048
     Dates: start: 20070101, end: 20071201
  3. KEPPRA [Suspect]
     Indication: EPILEPSY
     Dosage: DAILY DOSE:1000MG; PROGRESSIVELY INTRODUCED UNTIL 1000MG DAILY
     Route: 048
     Dates: start: 20071219

REACTIONS (2)
  - ABORTION SPONTANEOUS [None]
  - MATERNAL EXPOSURE DURING PREGNANCY [None]
